FAERS Safety Report 9224563 (Version 1)
Quarter: 2013Q1

REPORT INFORMATION
  Report Type: Spontaneous
  Country: US (occurrence: US)
  Receive Date: 20120917
  Receipt Date: 20120917
  Transmission Date: 20140127
  Serious: Yes (Hospitalization)
  Sender: FDA-Public Use
  Company Number: 1000024990

PATIENT
  Age: 30 Year
  Sex: Male
  Weight: 47.6 kg

DRUGS (6)
  1. CELEXA [Suspect]
     Indication: ANXIETY
     Route: 048
     Dates: start: 201012, end: 201104
  2. CELEXA [Suspect]
     Indication: ANXIETY
     Route: 048
     Dates: start: 201104, end: 20111025
  3. ATIVAN (LORAZEPAM)(LORAZEPAM) [Concomitant]
  4. LAMICTAL (LAMOTRIGINE)(LAMOTRIGINE) [Concomitant]
  5. ABILIFY (ARIPIPRAZOLE)(ARIPIPRAZOLE) [Concomitant]
  6. MULTIVITAMIN (MULTIVITAMIN)(MULTIVITAMIN) [Concomitant]

REACTIONS (7)
  - Suicide attempt [None]
  - Suicidal ideation [None]
  - Agitation [None]
  - Hostility [None]
  - Aggression [None]
  - Anger [None]
  - Irritability [None]
